FAERS Safety Report 4998059-6 (Version None)
Quarter: 2006Q2

REPORT INFORMATION
  Report Type: 
  Country: None (occurrence: None)
  Receive Date: 20060510
  Receipt Date: 20040304
  Transmission Date: 20061013
  Serious: Yes (Hospitalization)
  Sender: FDA-Public Use
  Company Number: US-MERCK-0403USA00599

PATIENT
  Age: 38 Year
  Sex: Male
  Weight: 73 kg

DRUGS (1)
  1. ZETIA [Suspect]
     Indication: HYPERCHOLESTEROLAEMIA
     Route: 048
     Dates: start: 20031207, end: 20031218

REACTIONS (4)
  - ALANINE AMINOTRANSFERASE INCREASED [None]
  - DIZZINESS [None]
  - HYPERTENSION [None]
  - TINNITUS [None]
